FAERS Safety Report 11811507 (Version 1)
Quarter: 2015Q4

REPORT INFORMATION
  Report Type: Spontaneous
  Country: SI (occurrence: SI)
  Receive Date: 20151208
  Receipt Date: 20151208
  Transmission Date: 20160305
  Serious: Yes (Other)
  Sender: FDA-Public Use
  Company Number: SI-BAUSCH-BL-2015-029332

PATIENT
  Age: 34 Year
  Sex: Female

DRUGS (3)
  1. EUTHYROX [Concomitant]
     Active Substance: LEVOTHYROXINE SODIUM
     Indication: PRODUCT USED FOR UNKNOWN INDICATION
  2. PANTOPRAZOLE [Concomitant]
     Active Substance: PANTOPRAZOLE SODIUM
     Indication: PRODUCT USED FOR UNKNOWN INDICATION
  3. MOVIPREP [Suspect]
     Active Substance: ASCORBIC ACID\POLYETHYLENE GLYCOL 3350\POTASSIUM CHLORIDE\SODIUM ASCORBATE\SODIUM CHLORIDE\SODIUM SULFATE
     Indication: LAXATIVE SUPPORTIVE CARE
     Route: 048
     Dates: start: 20151108, end: 20151108

REACTIONS (3)
  - Blood immunoglobulin E increased [Recovered/Resolved]
  - Angioedema [Recovered/Resolved]
  - Chest discomfort [Recovered/Resolved]
